FAERS Safety Report 19595820 (Version 2)
Quarter: 2021Q4

REPORT INFORMATION
  Report Type: Other
  Country: US (occurrence: US)
  Receive Date: 20210722
  Receipt Date: 20211130
  Transmission Date: 20220304
  Serious: Yes (Hospitalization, Other)
  Sender: FDA-Public Use
  Company Number: US-COVIS PHARMA GMBH-2021COV23141

PATIENT
  Age: 26 Year
  Sex: Female
  Weight: 108.96 kg

DRUGS (1)
  1. MAKENA [Suspect]
     Active Substance: HYDROXYPROGESTERONE CAPROATE
     Indication: Premature delivery
     Dosage: 275MG/1.1ML
     Route: 058
     Dates: start: 20210217, end: 20210623

REACTIONS (1)
  - Premature delivery [Recovered/Resolved]
